FAERS Safety Report 22766061 (Version 6)
Quarter: 2025Q1

REPORT INFORMATION
  Report Type: Spontaneous
  Country: US (occurrence: US)
  Receive Date: 20230731
  Receipt Date: 20250108
  Transmission Date: 20250408
  Serious: Yes (Other)
  Sender: PFIZER
  Company Number: US-PFIZER INC-202300257398

PATIENT
  Age: 82 Year
  Sex: Female
  Weight: 95.25 kg

DRUGS (1)
  1. PREMARIN [Suspect]
     Active Substance: ESTROGENS, CONJUGATED
     Indication: Vulvovaginal dryness
     Dosage: UNK, 2X/WEEK

REACTIONS (3)
  - Knee arthroplasty [Unknown]
  - Expired product administered [Unknown]
  - Intentional product misuse [Unknown]
